FAERS Safety Report 13337094 (Version 3)
Quarter: 2017Q2

REPORT INFORMATION
  Report Type: Spontaneous
  Country: US (occurrence: US)
  Receive Date: 20170315
  Receipt Date: 20170405
  Transmission Date: 20170830
  Serious: No
  Sender: FDA-Public Use
  Company Number: US-PFIZER INC-2017101755

PATIENT
  Age: 63 Year
  Sex: Male

DRUGS (1)
  1. LYRICA [Suspect]
     Active Substance: PREGABALIN
     Indication: NEUROPATHY PERIPHERAL
     Dosage: 150 MG, 4X/DAY
     Route: 048
     Dates: start: 2014

REACTIONS (7)
  - Withdrawal syndrome [Unknown]
  - Diarrhoea [Unknown]
  - Retching [Unknown]
  - Malaise [Recovered/Resolved]
  - Dysphagia [Unknown]
  - Vomiting [Unknown]
  - Vomiting projectile [Unknown]

NARRATIVE: CASE EVENT DATE: 20170317
